FAERS Safety Report 8809581 (Version 1)
Quarter: 2012Q4

REPORT INFORMATION
  Report Type: Report from Study
  Country: JP (occurrence: JP)
  Receive Date: 20120926
  Receipt Date: 20120926
  Transmission Date: 20130627
  Serious: Yes (Other)
  Sender: FDA-Public Use
  Company Number: JP-VERTEX PHARMACEUTICAL INC.-AE-2012-011848

PATIENT
  Age: 65 Year
  Sex: Female

DRUGS (5)
  1. VX-950 [Suspect]
     Indication: HEPATITIS C
     Dosage: 1500 mg, qd
     Route: 048
     Dates: start: 20120612, end: 20120904
  2. RIBAVIRIN [Suspect]
     Indication: HEPATITIS C
     Dosage: 400 mg, qd
     Route: 048
     Dates: start: 20120612
  3. PEGINTERFERON ALFA-2B [Suspect]
     Indication: HEPATITIS C
     Dosage: 100 UNK, UNK
     Route: 058
     Dates: start: 20120612
  4. THYRADIN S [Concomitant]
     Dosage: 35 ?g, qd
     Route: 048
  5. MAGMITT [Concomitant]
     Dosage: 1500 mg, qd
     Route: 048

REACTIONS (1)
  - Neutropenia [Unknown]
